FAERS Safety Report 8224906-0 (Version None)
Quarter: 2012Q1

REPORT INFORMATION
  Report Type: 
  Country: None (occurrence: None)
  Receive Date: 20120320
  Receipt Date: 20120320
  Transmission Date: 20120608
  Serious: No
  Sender: FDA-Public Use
  Company Number: None

PATIENT
  Age: 28 Year
  Sex: Male
  Weight: 61.2356 kg

DRUGS (1)
  1. AMBIEN [Suspect]
     Indication: SCHIZOPHRENIA
     Dosage: 6.25 QHS PO FEB + MAR 2012
     Route: 048

REACTIONS (1)
  - ABDOMINAL PAIN UPPER [None]
